FAERS Safety Report 8836920 (Version 4)
Quarter: 2013Q2

REPORT INFORMATION
  Report Type: Report from Study
  Country: US (occurrence: US)
  Receive Date: 20121012
  Receipt Date: 20130521
  Transmission Date: 20140414
  Serious: Yes (Hospitalization)
  Sender: FDA-Public Use
  Company Number: US-ACTELION-A-US2012-72460

PATIENT
  Age: 61 Year
  Sex: Female

DRUGS (1)
  1. TRACLEER [Suspect]
     Indication: PULMONARY ARTERIAL HYPERTENSION
     Dosage: UNK
     Route: 048

REACTIONS (12)
  - Road traffic accident [Recovering/Resolving]
  - Femur fracture [Unknown]
  - Intestinal obstruction [Recovering/Resolving]
  - Abdominal pain upper [Recovering/Resolving]
  - Laparoscopic surgery [Recovering/Resolving]
  - Myocardial infarction [Recovering/Resolving]
  - Constipation [Unknown]
  - Dyspnoea exertional [Unknown]
  - Diarrhoea [Unknown]
  - Mass excision [Recovering/Resolving]
  - Skin mass [Recovering/Resolving]
  - Skin ulcer [Recovering/Resolving]
